FAERS Safety Report 4487917-7 (Version None)
Quarter: 2004Q4

REPORT INFORMATION
  Report Type: 
  Country: None (occurrence: None)
  Receive Date: 20041022
  Receipt Date: 20041006
  Transmission Date: 20050328
  Serious: Yes (Life-Threatening, Hospitalization)
  Sender: FDA-Public Use
  Company Number: 2004-DE-04943SI

PATIENT
  Age: 64 Year
  Sex: Male

DRUGS (5)
  1. COMBIVENT [Suspect]
     Indication: CHRONIC OBSTRUCTIVE AIRWAYS DISEASE
     Dosage: STRENGTH: 20 MCG IPRATROPIUM BROMIDE, 100 MCG SALBUTAMOL (SEE MAX. 3XDAY
     Route: 055
     Dates: start: 20040101
  2. FORADIL [Concomitant]
  3. UNIFYL (THEOPHYLLINE) [Concomitant]
  4. PANTOZOL (PANTOPRAZOLE SODIUM) [Concomitant]
  5. SERETIDE DISKUS (SERETIDE MITE) [Concomitant]

REACTIONS (4)
  - ASPHYXIA [None]
  - BRONCHOSPASM [None]
  - LOSS OF CONSCIOUSNESS [None]
  - REACTION TO DRUG EXCIPIENT [None]
